FAERS Safety Report 20382458 (Version 1)
Quarter: 2022Q1

REPORT INFORMATION
  Report Type: Spontaneous
  Country: US (occurrence: US)
  Receive Date: 20220127
  Receipt Date: 20220127
  Transmission Date: 20220423
  Serious: No
  Sender: FDA-Public Use
  Company Number: US-PFIZER INC-202101883337

PATIENT
  Age: 85 Year
  Sex: Female
  Weight: 52.62 kg

DRUGS (2)
  1. PREMARIN [Suspect]
     Active Substance: ESTROGENS, CONJUGATED
     Indication: Bladder disorder
     Dosage: UNK (APPLIES A PEA SIZE AMOUNT 2-3 TIMES A WEEK VAGINALLY)
     Route: 067
     Dates: start: 202001
  2. PREMARIN [Suspect]
     Active Substance: ESTROGENS, CONJUGATED
     Dosage: UNK, 2X/WEEK

REACTIONS (4)
  - Memory impairment [Unknown]
  - Poor quality product administered [Unknown]
  - Product container issue [Unknown]
  - Off label use [Unknown]

NARRATIVE: CASE EVENT DATE: 20200101
